FAERS Safety Report 7521593-1 (Version None)
Quarter: 2011Q2

REPORT INFORMATION
  Report Type: 
  Country: None (occurrence: None)
  Receive Date: 20110603
  Receipt Date: 20110531
  Transmission Date: 20111010
  Serious: No
  Sender: FDA-Public Use
  Company Number: US-PFIZER INC-2011118349

PATIENT
  Age: 53 Year
  Sex: Female

DRUGS (2)
  1. CELEBREX [Suspect]
     Indication: ARTHRALGIA
  2. CELEBREX [Suspect]
     Indication: ARTHRITIS
     Dosage: 200 MG, UNK

REACTIONS (2)
  - DERMATITIS [None]
  - SUNBURN [None]
